FAERS Safety Report 7681777-9 (Version None)
Quarter: 2011Q3

REPORT INFORMATION
  Report Type: 
  Country: None (occurrence: None)
  Receive Date: 20110812
  Receipt Date: 20110803
  Transmission Date: 20111222
  Serious: Yes (Other)
  Sender: FDA-Public Use
  Company Number: US-ASTRAZENECA-2011SE46887

PATIENT
  Age: 664 Month
  Sex: Female

DRUGS (3)
  1. ZOLADEX [Concomitant]
     Route: 058
  2. HERBAL MEDICINES [Concomitant]
  3. ARIMIDEX [Suspect]
     Route: 048
     Dates: start: 20010101, end: 20060101

REACTIONS (6)
  - BONE NEOPLASM MALIGNANT [None]
  - MENOPAUSAL SYMPTOMS [None]
  - MASS [None]
  - MUSCULOSKELETAL PAIN [None]
  - BREAST CANCER [None]
  - COUGH [None]
